FAERS Safety Report 8309525-X (Version None)
Quarter: 2012Q2

REPORT INFORMATION
  Report Type: 
  Country: None (occurrence: None)
  Receive Date: 20120425
  Receipt Date: 20120419
  Transmission Date: 20120825
  Serious: No
  Sender: FDA-Public Use
  Company Number: US-PFIZER INC-2011096599

PATIENT
  Sex: Female
  Weight: 97.506 kg

DRUGS (21)
  1. NASONEX [Concomitant]
     Indication: HYPERSENSITIVITY
     Dosage: 200 UG, DAILY
  2. PRISTIQ [Suspect]
     Indication: BIPOLAR DISORDER
     Dosage: 100 MG, 2X/DAY
     Route: 048
     Dates: start: 20100101
  3. CYCLOSPORINE [Concomitant]
     Dosage: UNK
  4. INDERAL [Concomitant]
     Indication: HYPERTENSION
     Dosage: UNK, DAILY
  5. FLEXERIL [Concomitant]
     Indication: MUSCLE SPASMS
     Dosage: 10 MG, 3X/DAY
     Route: 048
  6. XANAX [Concomitant]
     Indication: ANXIETY
     Dosage: UNK, 2X/DAY
     Route: 048
  7. METFORMIN [Concomitant]
     Indication: DIABETES MELLITUS
     Dosage: 500 MG, 2X/DAY
     Route: 048
  8. TOPAMAX [Concomitant]
     Indication: MIGRAINE
     Dosage: 300 MG, 2X/DAY
     Route: 048
  9. SINGULAIR [Concomitant]
     Indication: ASTHMA
     Dosage: 10 MG, DAILY
  10. RISPERDAL [Concomitant]
     Indication: BIPOLAR DISORDER
     Dosage: UNK, 2X/DAY
     Route: 048
  11. DEXLANSOPRAZOLE [Concomitant]
     Indication: GASTROOESOPHAGEAL REFLUX DISEASE
     Dosage: 60 MG, 1X/DAY
     Route: 048
  12. JANUVIA [Concomitant]
     Indication: DIABETES MELLITUS
     Dosage: 100 MG, DAILY
  13. FENOFIBRIC ACID [Concomitant]
     Indication: BLOOD CHOLESTEROL INCREASED
     Dosage: 135 MG, 1X/DAY
     Route: 048
  14. ZOCOR [Concomitant]
     Indication: BLOOD CHOLESTEROL INCREASED
     Dosage: 20 MG, DAILY
  15. LYRICA [Concomitant]
     Indication: FIBROMYALGIA
     Dosage: 200 MG, 2X/DAY
     Route: 048
  16. BENTYL [Concomitant]
     Indication: IRRITABLE BOWEL SYNDROME
     Dosage: 20 MG, EVERY SIX HOURS
  17. INDERAL [Concomitant]
     Indication: MIGRAINE
  18. CELEBREX [Concomitant]
     Indication: ARTHRITIS
     Dosage: 200 MG, 2X/DAY
     Route: 048
  19. LISINOPRIL [Concomitant]
     Indication: RENAL DISORDER
     Dosage: 2.5 MG, DAILY
  20. SONATA [Concomitant]
     Indication: INSOMNIA
     Dosage: UNK, DAILY
     Route: 048
  21. VICODIN [Concomitant]
     Dosage: 5/500 MG, DAILY
     Route: 048

REACTIONS (2)
  - DRUG SCREEN POSITIVE [None]
  - DRUG SCREEN FALSE POSITIVE [None]
